FAERS Safety Report 14900458 (Version 1)
Quarter: 2018Q2

REPORT INFORMATION
  Report Type: Spontaneous
  Country: US (occurrence: US)
  Receive Date: 20180516
  Receipt Date: 20180516
  Transmission Date: 20180711
  Serious: Yes (Other)
  Sender: FDA-Public Use
  Company Number: US-APOTEX-2018AP013725

PATIENT
  Age: 66 Year
  Sex: Male
  Weight: 81 kg

DRUGS (3)
  1. KETOCONAZOLE. [Suspect]
     Active Substance: KETOCONAZOLE
     Indication: FUNGAL INFECTION
     Dosage: 200 MG, BID
     Route: 048
  2. NALTREXONE [Suspect]
     Active Substance: NALTREXONE
     Indication: PROPHYLAXIS
     Dosage: 4.5 MG, QD
     Route: 065
  3. FLUCONAZOLE. [Suspect]
     Active Substance: FLUCONAZOLE
     Indication: FUNGAL INFECTION
     Dosage: UNK UNK, BID
     Route: 065

REACTIONS (11)
  - Alcohol intolerance [Unknown]
  - Hypotension [Unknown]
  - Off label use [Unknown]
  - Burning sensation [Unknown]
  - Tremor [Unknown]
  - Therapeutic product cross-reactivity [Unknown]
  - Paraesthesia [Unknown]
  - Dehydration [Unknown]
  - Dyspnoea [Unknown]
  - Angioedema [Unknown]
  - Tinnitus [Unknown]
